FAERS Safety Report 7876674-X (Version None)
Quarter: 2011Q4

REPORT INFORMATION
  Report Type: 
  Country: None (occurrence: None)
  Receive Date: 20111031
  Receipt Date: 20111021
  Transmission Date: 20120403
  Serious: Yes (Other)
  Sender: FDA-Public Use
  Company Number: US-BAYER-201039481NA

PATIENT
  Age: 24 Year
  Sex: Female
  Weight: 61.224 kg

DRUGS (9)
  1. YASMIN [Suspect]
     Indication: CONTRACEPTION
     Dosage: UNK UNK, UNK
     Route: 048
     Dates: start: 20040201, end: 20080301
  2. DROSPIRENONE AND ETHINYL ESTRADIOL [Suspect]
     Dosage: UNK
     Dates: start: 20091001, end: 20100201
  3. ALLEGRA D 24 HOUR [Concomitant]
     Indication: MULTIPLE ALLERGIES
     Dosage: UNK UNK, BID
     Dates: start: 20040101, end: 20100101
  4. ACIPHEX [Concomitant]
     Dosage: 20 MG, UNK
  5. DROSPIRENONE AND ETHINYL ESTRADIOL [Suspect]
     Indication: CONTRACEPTION
     Dosage: UNK
     Dates: start: 20080801, end: 20100201
  6. SINGULAIR [Concomitant]
     Dosage: 10 MG, DAILY
     Dates: start: 20040101, end: 20050101
  7. CLARITIN [Concomitant]
     Indication: MULTIPLE ALLERGIES
     Dosage: UNK
     Dates: start: 20020101
  8. YASMIN [Suspect]
     Dosage: UNK
     Dates: start: 20080901, end: 20090901
  9. RANITIDINE [Concomitant]
     Indication: ABDOMINAL PAIN UPPER
     Dosage: 150 MG, DAILY
     Route: 048
     Dates: start: 20050901

REACTIONS (4)
  - GALLBLADDER DISORDER [None]
  - CHOLECYSTITIS CHRONIC [None]
  - CHOLELITHIASIS [None]
  - STRESS [None]
